FAERS Safety Report 17269434 (Version 4)
Quarter: 2020Q1

REPORT INFORMATION
  Report Type: Report from Study
  Country: None (occurrence: CA)
  Receive Date: 20200114
  Receipt Date: 20200127
  Transmission Date: 20200409
  Serious: Yes (Hospitalization)
  Sender: FDA-Public Use
  Company Number: CA-ABBVIE-20K-028-3231615-00

PATIENT
  Age: 75 Year
  Sex: Male
  Weight: 105 kg

DRUGS (7)
  1. VENETOCLAX. [Suspect]
     Active Substance: VENETOCLAX
     Route: 048
     Dates: start: 20190509, end: 20190716
  2. VENETOCLAX. [Suspect]
     Active Substance: VENETOCLAX
     Route: 048
     Dates: start: 20190418, end: 20190424
  3. VENETOCLAX. [Suspect]
     Active Substance: VENETOCLAX
     Route: 048
     Dates: start: 20190502, end: 20190508
  4. VENETOCLAX. [Suspect]
     Active Substance: VENETOCLAX
     Route: 048
     Dates: start: 20190425, end: 20190501
  5. VENETOCLAX. [Suspect]
     Active Substance: VENETOCLAX
     Route: 048
     Dates: start: 20190717
  6. FILGRASTIM [Concomitant]
     Active Substance: FILGRASTIM
     Indication: NEUTROPENIA
     Dates: start: 20190501, end: 20190724
  7. VENETOCLAX. [Suspect]
     Active Substance: VENETOCLAX
     Indication: PRODUCT USED FOR UNKNOWN INDICATION
     Route: 048
     Dates: start: 20190411, end: 20190417

REACTIONS (2)
  - Neutropenia [Unknown]
  - Small intestinal obstruction [Recovered/Resolved]

NARRATIVE: CASE EVENT DATE: 20191004
